FAERS Safety Report 5607550-0 (Version None)
Quarter: 2008Q1

REPORT INFORMATION
  Report Type: 
  Country: None (occurrence: None)
  Receive Date: 20080130
  Receipt Date: 20080121
  Transmission Date: 20080703
  Serious: Yes (Life-Threatening)
  Sender: FDA-Public Use
  Company Number: JP-BAYER-200711110BYL

PATIENT
  Age: 69 Year
  Sex: Male
  Weight: 54 kg

DRUGS (10)
  1. AVELOX [Interacting]
     Indication: PHARYNGITIS
     Dosage: TOTAL DAILY DOSE: 400 MG  UNIT DOSE: 400 MG
     Route: 048
     Dates: start: 20071211, end: 20071217
  2. WARFARIN SODIUM [Interacting]
     Indication: ATRIAL FIBRILLATION
     Dosage: TOTAL DAILY DOSE: 3 MG
     Route: 048
     Dates: start: 20070919
  3. BEPRICOR [Suspect]
     Indication: ATRIAL FIBRILLATION
     Dosage: TOTAL DAILY DOSE: 200 MG
     Route: 048
     Dates: start: 20070919, end: 20071218
  4. ENALAPRIL MALEATE [Concomitant]
     Indication: HYPERTENSION
     Dosage: TOTAL DAILY DOSE: 5 MG  UNIT DOSE: 5 MG
     Route: 048
     Dates: start: 19970601
  5. PERSANTIN-L [Concomitant]
     Indication: NEPHROTIC SYNDROME
     Dosage: TOTAL DAILY DOSE: 600 MG  UNIT DOSE: 150 MG
     Route: 048
     Dates: start: 19970601
  6. LIPITOR [Concomitant]
     Indication: HYPERLIPIDAEMIA
     Dosage: TOTAL DAILY DOSE: 5 MG  UNIT DOSE: 5 MG
     Route: 048
  7. NEORAL [Concomitant]
     Indication: NEPHROTIC SYNDROME
     Dosage: TOTAL DAILY DOSE: 50 MG  UNIT DOSE: 50 MG
     Route: 048
  8. PREDNISOLONE [Concomitant]
     Indication: NEPHROTIC SYNDROME
     Dosage: TOTAL DAILY DOSE: 3 MG  UNIT DOSE: 1 MG
     Route: 048
  9. ATELEC [Concomitant]
     Route: 048
  10. MARZULENE [Concomitant]
     Route: 048

REACTIONS (2)
  - CARDIAC TAMPONADE [None]
  - INTERNATIONAL NORMALISED RATIO INCREASED [None]
